FAERS Safety Report 4399250-2 (Version None)
Quarter: 2004Q2

REPORT INFORMATION
  Report Type: 
  Country: None (occurrence: None)
  Receive Date: 20040621
  Receipt Date: 20040114
  Transmission Date: 20050107
  Serious: Yes (Other)
  Sender: FDA-Public Use
  Company Number: USA-2003-0008915

PATIENT
  Age: 33 Year
  Sex: Female
  Weight: 132.4 kg

DRUGS (9)
  1. OXYCONTIN [Suspect]
     Indication: PAIN
     Dosage: 20 MG, BID, ORAL
     Route: 048
  2. PERCOCET [Suspect]
     Indication: PAIN
     Dosage: ORAL
     Route: 048
  3. PAXIL [Concomitant]
  4. ATIVAN [Concomitant]
  5. VALIUM [Concomitant]
  6. TRAZODONE HCL [Concomitant]
  7. ALBUTEROL [Concomitant]
  8. SEREVENT [Concomitant]
  9. WELLBUTRIN [Concomitant]

REACTIONS (29)
  - BACK PAIN [None]
  - BLISTER [None]
  - CHILLS [None]
  - CONFUSIONAL STATE [None]
  - CONSTIPATION [None]
  - DEPRESSION [None]
  - DERMATITIS CONTACT [None]
  - DIARRHOEA [None]
  - DRUG DEPENDENCE [None]
  - DRUG INEFFECTIVE [None]
  - DRUG TOLERANCE [None]
  - DRUG WITHDRAWAL SYNDROME [None]
  - HEADACHE [None]
  - HOT FLUSH [None]
  - HYPOAESTHESIA [None]
  - INSOMNIA [None]
  - IRRITABILITY [None]
  - IRRITABLE BOWEL SYNDROME [None]
  - NAIL TINEA [None]
  - NASAL CONGESTION [None]
  - NAUSEA [None]
  - NERVOUSNESS [None]
  - OEDEMA PERIPHERAL [None]
  - PRURITUS [None]
  - TEARFULNESS [None]
  - TREMOR [None]
  - URINARY INCONTINENCE [None]
  - VOMITING [None]
  - WEIGHT DECREASED [None]
